FAERS Safety Report 9217048 (Version 2)
Quarter: 2013Q2

REPORT INFORMATION
  Report Type: Spontaneous
  Country: GB (occurrence: None)
  Receive Date: 20130404
  Receipt Date: 20130410
  Transmission Date: 20140414
  Serious: Yes (Other)
  Sender: FDA-Public Use
  Company Number: AUR-APL-2013-02726

PATIENT
  Age: 26 Year
  Sex: Male
  Weight: 70 kg

DRUGS (1)
  1. FINASTERIDE [Suspect]
     Indication: ANDROGENETIC ALOPECIA
     Route: 048
     Dates: start: 20121207, end: 20121227

REACTIONS (9)
  - Libido decreased [None]
  - Erectile dysfunction [None]
  - Depression [None]
  - Testicular disorder [None]
  - Feeling abnormal [None]
  - Muscle atrophy [None]
  - Apathy [None]
  - Emotional disorder [None]
  - Vision blurred [None]
